FAERS Safety Report 23276932 (Version 2)
Quarter: 2023Q4

REPORT INFORMATION
  Report Type: Spontaneous
  Country: DE (occurrence: DE)
  Receive Date: 20231208
  Receipt Date: 20231211
  Transmission Date: 20240110
  Serious: Yes (Death, Hospitalization)
  Sender: FDA-Public Use
  Company Number: DE-BAYER-2023A172546

PATIENT
  Age: 73 Year
  Sex: Male
  Weight: 70 kg

DRUGS (6)
  1. NUBEQA [Suspect]
     Active Substance: DAROLUTAMIDE
     Indication: Prostate cancer
     Dosage: 600 MG, BID
     Dates: start: 20230516, end: 20230806
  2. NUBEQA [Suspect]
     Active Substance: DAROLUTAMIDE
     Indication: Hormone-dependent prostate cancer
  3. NUBEQA [Suspect]
     Active Substance: DAROLUTAMIDE
     Indication: Metastases to lung
  4. NUBEQA [Suspect]
     Active Substance: DAROLUTAMIDE
     Indication: Metastases to bone
  5. NUBEQA [Suspect]
     Active Substance: DAROLUTAMIDE
     Indication: Metastases to lymph nodes
  6. DOCETAXEL [Concomitant]
     Active Substance: DOCETAXEL\DOCETAXEL ANHYDROUS
     Dosage: EVERY 3 WEEKS
     Dates: start: 20230620, end: 20230801

REACTIONS (2)
  - Pneumocystis jirovecii pneumonia [Fatal]
  - Neurosurgery [None]

NARRATIVE: CASE EVENT DATE: 20230601
